FAERS Safety Report 16701722 (Version 2)
Quarter: 2019Q3

REPORT INFORMATION
  Report Type: Spontaneous
  Country: US (occurrence: US)
  Receive Date: 20190814
  Receipt Date: 20190924
  Transmission Date: 20191004
  Serious: Yes (Other)
  Sender: FDA-Public Use
  Company Number: US-UNITED THERAPEUTICS-UNT-2019-013356

PATIENT
  Age: 5 Year
  Sex: Female
  Weight: 14.2 kg

DRUGS (4)
  1. UNITUXIN [Suspect]
     Active Substance: DINUTUXIMAB
     Dosage: 11.2 MG, TOTAL DAILY DOSE, CYCLE 2
     Route: 041
     Dates: start: 20190730, end: 20190802
  2. ISOTRETINOIN. [Concomitant]
     Active Substance: ISOTRETINOIN
     Indication: NEUROBLASTOMA
     Route: 065
  3. UNITUXIN [Suspect]
     Active Substance: DINUTUXIMAB
     Indication: NEUROBLASTOMA
     Dosage: 10.85 MG, TOTAL DAILY DOSE, CYCLE 1
     Route: 041
  4. INTERLEUKIN-2 [Suspect]
     Active Substance: ALDESLEUKIN
     Indication: NEUROBLASTOMA
     Dosage: UNK
     Route: 065
     Dates: start: 20190723, end: 20190802

REACTIONS (4)
  - Pyrexia [Recovered/Resolved]
  - Pain [Recovered/Resolved]
  - Myelitis transverse [Not Recovered/Not Resolved]
  - Adenovirus test positive [Recovered/Resolved]

NARRATIVE: CASE EVENT DATE: 20190730
